FAERS Safety Report 16294352 (Version 1)
Quarter: 2019Q2

REPORT INFORMATION
  Report Type: Spontaneous
  Country: US (occurrence: US)
  Receive Date: 20190509
  Receipt Date: 20190509
  Transmission Date: 20190711
  Serious: No
  Sender: FDA-Public Use
  Company Number: US-ROCHE-2174260

PATIENT
  Sex: Female

DRUGS (3)
  1. FISH OIL [Concomitant]
     Active Substance: FISH OIL
     Route: 065
  2. ESBRIET [Suspect]
     Active Substance: PIRFENIDONE
     Indication: IDIOPATHIC PULMONARY FIBROSIS
     Dosage: 3 CAP WITH MEAL
     Route: 048
  3. FIBER [Concomitant]
     Active Substance: PSYLLIUM HUSK
     Route: 065

REACTIONS (2)
  - Abdominal discomfort [Not Recovered/Not Resolved]
  - Diarrhoea [Not Recovered/Not Resolved]
